FAERS Safety Report 21087260 (Version 2)
Quarter: 2022Q3

REPORT INFORMATION
  Report Type: Report from Study
  Country: US (occurrence: US)
  Receive Date: 20220715
  Receipt Date: 20220805
  Transmission Date: 20221027
  Serious: Yes (Other)
  Sender: FDA-Public Use
  Company Number: US-BAUSCH-BL-2022-017978

PATIENT
  Age: 66 Year
  Sex: Male

DRUGS (1)
  1. SYPRINE [Suspect]
     Active Substance: TRIENTINE HYDROCHLORIDE
     Indication: Product used for unknown indication
     Dosage: DOSING INFORMATION: 250MG
     Route: 065

REACTIONS (1)
  - Neoplasm malignant [Unknown]
